FAERS Safety Report 8046616-5 (Version None)
Quarter: 2012Q1

REPORT INFORMATION
  Report Type: 
  Country: None (occurrence: None)
  Receive Date: 20120114
  Receipt Date: 20120109
  Transmission Date: 20120608
  Serious: No
  Sender: FDA-Public Use
  Company Number: US-BAYER-2012-003414

PATIENT
  Age: 85 Year
  Sex: Male
  Weight: 77 kg

DRUGS (3)
  1. COZAAR [Concomitant]
  2. ALEVE (CAPLET) [Suspect]
     Indication: ANALGESIC THERAPY
     Dosage: 2 DF, QD
     Route: 048
     Dates: end: 20120101
  3. ASPIRIN [Suspect]

REACTIONS (2)
  - GLOSSODYNIA [None]
  - NO ADVERSE EVENT [None]
